FAERS Safety Report 5613965-7 (Version None)
Quarter: 2008Q1

REPORT INFORMATION
  Report Type: 
  Country: None (occurrence: None)
  Receive Date: 20080129
  Receipt Date: 20080122
  Transmission Date: 20080703
  Serious: Yes (Other)
  Sender: FDA-Public Use
  Company Number: THQ2008A00269

PATIENT
  Age: 70 Year
  Sex: Male

DRUGS (10)
  1. LANSOPRAZOLE [Suspect]
     Dosage: PER ORAL
     Route: 048
  2. EFEXOR XR (VENLAFAXINE) (CAPSULES) [Suspect]
     Indication: DEPRESSION
     Dosage: 75 MG (75 MG, 1 IN 1 D) PER ORAL; 150 MG (150 MG, 1 IN 1 D) PER ORAL; PER ORAL
     Route: 048
     Dates: start: 20070101, end: 20070101
  3. EFEXOR XR (VENLAFAXINE) (CAPSULES) [Suspect]
     Indication: SUICIDAL IDEATION
     Dosage: 75 MG (75 MG, 1 IN 1 D) PER ORAL; 150 MG (150 MG, 1 IN 1 D) PER ORAL; PER ORAL
     Route: 048
     Dates: start: 20070101, end: 20070101
  4. EFEXOR XR (VENLAFAXINE) (CAPSULES) [Suspect]
     Indication: DEPRESSION
     Dosage: 75 MG (75 MG, 1 IN 1 D) PER ORAL; 150 MG (150 MG, 1 IN 1 D) PER ORAL; PER ORAL
     Route: 048
     Dates: start: 20070101
  5. EFEXOR XR (VENLAFAXINE) (CAPSULES) [Suspect]
     Indication: SUICIDAL IDEATION
     Dosage: 75 MG (75 MG, 1 IN 1 D) PER ORAL; 150 MG (150 MG, 1 IN 1 D) PER ORAL; PER ORAL
     Route: 048
     Dates: start: 20070101
  6. EFEXOR XR (VENLAFAXINE) (CAPSULES) [Suspect]
     Indication: DEPRESSION
     Dosage: 75 MG (75 MG, 1 IN 1 D) PER ORAL; 150 MG (150 MG, 1 IN 1 D) PER ORAL; PER ORAL
     Route: 048
     Dates: start: 20070101
  7. EFEXOR XR (VENLAFAXINE) (CAPSULES) [Suspect]
     Indication: SUICIDAL IDEATION
     Dosage: 75 MG (75 MG, 1 IN 1 D) PER ORAL; 150 MG (150 MG, 1 IN 1 D) PER ORAL; PER ORAL
     Route: 048
     Dates: start: 20070101
  8. PANADEINE FORTE (PANADEINE CO) [Concomitant]
  9. OXYCONTIN [Concomitant]
  10. LIPITOR [Concomitant]

REACTIONS (3)
  - BLOOD TESTOSTERONE DECREASED [None]
  - SOMNOLENCE [None]
  - SUICIDAL IDEATION [None]
